FAERS Safety Report 18444231 (Version 1)
Quarter: 2020Q4

REPORT INFORMATION
  Report Type: Spontaneous
  Country: AU (occurrence: AU)
  Receive Date: 20201027
  Receipt Date: 20201027
  Transmission Date: 20210114
  Serious: Yes (Hospitalization)
  Sender: FDA-Public Use
  Company Number: None

PATIENT
  Age: 24 Year
  Sex: Female
  Weight: 160.1 kg

DRUGS (2)
  1. AZATHIOPRINE. [Suspect]
     Active Substance: AZATHIOPRINE
  2. RENFLEXIS [Suspect]
     Active Substance: INFLIXIMAB-ABDA

REACTIONS (8)
  - Abdominal pain [None]
  - Irritable bowel syndrome [None]
  - Muscle spasms [None]
  - Large intestinal stenosis [None]
  - Intestinal obstruction [None]
  - Crohn^s disease [None]
  - Nausea [None]
  - Constipation [None]
